FAERS Safety Report 6707386-3 (Version None)
Quarter: 2010Q2

REPORT INFORMATION
  Report Type: 
  Country: None (occurrence: None)
  Receive Date: 20100503
  Receipt Date: 20090924
  Transmission Date: 20101027
  Serious: No
  Sender: FDA-Public Use
  Company Number: US-ASTRAZENECA-2009SE15130

PATIENT
  Sex: Male
  Weight: 81.6 kg

DRUGS (4)
  1. NEXIUM [Suspect]
     Indication: GASTROOESOPHAGEAL REFLUX DISEASE
     Route: 048
  2. ZEGERID [Concomitant]
  3. MYLANTA [Concomitant]
  4. TUMS [Concomitant]

REACTIONS (2)
  - REFLUX OESOPHAGITIS [None]
  - THROAT IRRITATION [None]
